FAERS Safety Report 12650837 (Version 1)
Quarter: 2016Q3

REPORT INFORMATION
  Report Type: Spontaneous
  Country: US (occurrence: US)
  Receive Date: 20160815
  Receipt Date: 20160815
  Transmission Date: 20161109
  Serious: No
  Sender: FDA-Public Use
  Company Number: US-JAZZ-2016-US-005026

PATIENT
  Age: 34 Year
  Sex: Female
  Weight: 68.93 kg

DRUGS (8)
  1. XYREM [Suspect]
     Active Substance: SODIUM OXYBATE
     Indication: NARCOLEPSY
     Dosage: 2.25 G, BID
     Route: 048
     Dates: start: 201512, end: 201512
  2. MODAFINIL. [Concomitant]
     Active Substance: MODAFINIL
     Indication: SOMNOLENCE
  3. XYREM [Suspect]
     Active Substance: SODIUM OXYBATE
     Dosage: 3.75 G, BID
     Route: 048
     Dates: start: 201601
  4. NUVIGIL [Concomitant]
     Active Substance: ARMODAFINIL
  5. VITAMIN E [Concomitant]
     Active Substance: .ALPHA.-TOCOPHEROL
  6. XYREM [Suspect]
     Active Substance: SODIUM OXYBATE
     Indication: CATAPLEXY
     Dosage: 3 G, BID
     Route: 048
     Dates: start: 201512, end: 201601
  7. ESCITALOPRAM [Concomitant]
     Active Substance: ESCITALOPRAM OXALATE
  8. CLONAZEPAM. [Concomitant]
     Active Substance: CLONAZEPAM

REACTIONS (4)
  - Abdominal discomfort [Not Recovered/Not Resolved]
  - Mitral valve prolapse [Unknown]
  - Incorrect dose administered [Unknown]
  - Nausea [Recovered/Resolved]

NARRATIVE: CASE EVENT DATE: 201602
